FAERS Safety Report 10060272 (Version 2)
Quarter: 2014Q2

REPORT INFORMATION
  Report Type: Spontaneous
  Country: US (occurrence: US)
  Receive Date: 20140404
  Receipt Date: 20140429
  Transmission Date: 20141212
  Serious: Yes (Other)
  Sender: FDA-Public Use
  Company Number: US-TEVA-473212USA

PATIENT
  Sex: Female

DRUGS (3)
  1. GABAPENTIN [Suspect]
     Indication: NEURALGIA
     Dates: start: 2011, end: 201301
  2. GABAPENTIN [Suspect]
     Indication: RESTLESS LEGS SYNDROME
     Dates: start: 201306, end: 2013
  3. VENLAFAXINE ER [Suspect]
     Indication: POST-TRAUMATIC STRESS DISORDER
     Dates: start: 201302

REACTIONS (12)
  - Dural tear [Unknown]
  - Cerebrospinal fluid leakage [Unknown]
  - Restless legs syndrome [Unknown]
  - Withdrawal syndrome [Unknown]
  - Trigeminal neuralgia [Unknown]
  - Drug ineffective [Unknown]
  - Off label use [Unknown]
  - Neuropathy peripheral [Unknown]
  - Neuralgia [Unknown]
  - Pain [Unknown]
  - Burning sensation [Unknown]
  - Incorrect dose administered [Unknown]
